FAERS Safety Report 4372431-X (Version None)
Quarter: 2004Q2

REPORT INFORMATION
  Report Type: 
  Country: None (occurrence: None)
  Receive Date: 20040526
  Receipt Date: 20040510
  Transmission Date: 20050107
  Serious: Yes (Death, Hospitalization)
  Sender: FDA-Public Use
  Company Number: ES-JNJFOC-20040101780

PATIENT
  Age: 58 Year
  Sex: Male

DRUGS (4)
  1. REMICADE [Suspect]
     Indication: COLITIS ULCERATIVE
     Dosage: 5 MG/KG INTRAVENOUS
     Route: 042
     Dates: start: 20030508, end: 20031017
  2. AZATHIOPRINE [Concomitant]
  3. CIPROFLOXACIN [Concomitant]
  4. PREDNISOLONE [Concomitant]

REACTIONS (8)
  - ANOREXIA [None]
  - ASTHENIA [None]
  - DECREASED APPETITE [None]
  - METASTASES TO LUNG [None]
  - PROSTATE CANCER [None]
  - PYREXIA [None]
  - RECTAL HAEMORRHAGE [None]
  - WEIGHT DECREASED [None]
